FAERS Safety Report 7548093-7 (Version None)
Quarter: 2011Q2

REPORT INFORMATION
  Report Type: 
  Country: None (occurrence: None)
  Receive Date: 20110615
  Receipt Date: 20110523
  Transmission Date: 20111010
  Serious: Yes (Hospitalization, Other)
  Sender: FDA-Public Use
  Company Number: US-BAYER-2011-000229

PATIENT
  Age: 33 Year
  Sex: Female
  Weight: 86 kg

DRUGS (4)
  1. ATENOLOL [Concomitant]
  2. YASMIN [Suspect]
     Indication: ACNE
  3. GLUCOPHAGE [Concomitant]
     Indication: POLYCYSTIC OVARIES
     Dosage: 100 MG, UNK
  4. MIDRIN [Concomitant]
     Indication: MIGRAINE

REACTIONS (2)
  - CHOLELITHIASIS [None]
  - GALLBLADDER INJURY [None]
